FAERS Safety Report 25699489 (Version 1)
Quarter: 2025Q3

REPORT INFORMATION
  Report Type: Spontaneous
  Country: EU (occurrence: EU)
  Receive Date: 20250819
  Receipt Date: 20250819
  Transmission Date: 20251020
  Serious: Yes (Congenital Anomaly, Other)
  Sender: REGENERON
  Company Number: EU-EMB-M202401646-1

PATIENT
  Sex: Male

DRUGS (2)
  1. EYLEA [Suspect]
     Active Substance: AFLIBERCEPT
     Indication: Age-related macular degeneration
     Route: 064
     Dates: start: 202312, end: 202409
  2. BISOPROLOL [Suspect]
     Active Substance: BISOPROLOL
     Indication: Age-related macular degeneration
     Dosage: 1.25 MG, QD, STOPPED BETWEEN GW 28 UND 32
     Route: 064
     Dates: start: 202312, end: 202409

REACTIONS (2)
  - Hypospadias [Not Recovered/Not Resolved]
  - Foetal exposure during pregnancy [Unknown]
